FAERS Safety Report 7325319-6 (Version None)
Quarter: 2011Q1

REPORT INFORMATION
  Report Type: 
  Country: None (occurrence: None)
  Receive Date: 20110302
  Receipt Date: 20100830
  Transmission Date: 20110831
  Serious: Yes (Hospitalization, Disabling)
  Sender: FDA-Public Use
  Company Number: US-BAYER-201017770NA

PATIENT
  Sex: Female
  Weight: 54.545 kg

DRUGS (19)
  1. TRIAMCINOLONE [Concomitant]
  2. PREDNISONE [Concomitant]
  3. ALBUTEROL [Concomitant]
  4. ZYRTEC [Concomitant]
  5. SINGULAIR [Concomitant]
  6. ALLERGY SHOTS [Concomitant]
  7. FLONASE [Concomitant]
  8. ALLEGRA [Concomitant]
  9. EYE DROPS [Concomitant]
  10. YAZ [Suspect]
     Indication: PRODUCT USED FOR UNKNOWN INDICATION
     Dosage: UNK
     Dates: start: 20070907
  11. VENTOLIN DS [Concomitant]
  12. MOTRIN [Concomitant]
  13. ADVIL LIQUI-GELS [Concomitant]
  14. HYDROCORTISONE [Concomitant]
  15. COLACE [Concomitant]
     Indication: GASTROINTESTINAL DISORDER
  16. YASMIN [Suspect]
     Indication: ORAL CONTRACEPTION
     Dosage: AS USED DOSE: UNK
     Route: 048
     Dates: start: 20061201, end: 20080610
  17. MACROBID [Concomitant]
  18. BENADRYL [Concomitant]
  19. EPIPEN [Concomitant]
     Indication: MULTIPLE ALLERGIES
     Dosage: UNK UNK, PRN

REACTIONS (6)
  - PULMONARY EMBOLISM [None]
  - PAIN IN EXTREMITY [None]
  - DEEP VEIN THROMBOSIS [None]
  - MUSCULOSKELETAL PAIN [None]
  - CHEST PAIN [None]
  - PNEUMONIA [None]
